FAERS Safety Report 15348684 (Version 1)
Quarter: 2018Q3

REPORT INFORMATION
  Report Type: Spontaneous
  Country: US (occurrence: US)
  Receive Date: 20180829
  Receipt Date: 20180829
  Transmission Date: 20181010
  Serious: Yes (Hospitalization)
  Sender: FDA-Public Use
  Company Number: None

PATIENT
  Age: 90 Year
  Sex: Female
  Weight: 90 kg

DRUGS (14)
  1. ASCORBIC ACID 500MG [Concomitant]
  2. ACTAMINOPHEN 650 CR [Concomitant]
  3. JANUVIA 25 MG [Concomitant]
  4. COENZYME Q 10 200MG [Concomitant]
  5. METOPROLOL 50 MG [Concomitant]
     Active Substance: METOPROLOL
  6. POTASSIUM 10 MEQ [Concomitant]
  7. WARFARIN [Suspect]
     Active Substance: WARFARIN
     Indication: ATRIAL FIBRILLATION
     Route: 048
  8. LATANOPROST 0.005% [Concomitant]
     Active Substance: LATANOPROST
  9. FUROSEMIDE 40 MG [Concomitant]
     Active Substance: FUROSEMIDE
  10. DILTIAZEM 60 MG [Concomitant]
  11. SPIRONOLACTONE 25 MG [Concomitant]
     Active Substance: SPIRONOLACTONE
  12. BRIMONIDINE [Concomitant]
     Active Substance: BRIMONIDINE TARTRATE
  13. CALCITRIOL 0.25 MG [Concomitant]
  14. SIMVASTATIN 10 MG [Concomitant]
     Active Substance: SIMVASTATIN

REACTIONS (9)
  - Constipation [None]
  - Haemoglobin decreased [None]
  - Faeces discoloured [None]
  - Contusion [None]
  - Skin haemorrhage [None]
  - Asthenia [None]
  - Dyspnoea [None]
  - Nausea [None]
  - International normalised ratio increased [None]

NARRATIVE: CASE EVENT DATE: 20180316
